FAERS Safety Report 24680299 (Version 1)
Quarter: 2024Q4

REPORT INFORMATION
  Report Type: Spontaneous
  Country: US (occurrence: US)
  Receive Date: 20241129
  Receipt Date: 20241129
  Transmission Date: 20250115
  Serious: Yes (Hospitalization)
  Sender: BIOCODEX
  Company Number: US-BIOCODEX2-2023001454

PATIENT
  Sex: Female
  Weight: 61.2 kg

DRUGS (3)
  1. DIACOMIT [Suspect]
     Active Substance: STIRIPENTOL
     Indication: Severe myoclonic epilepsy of infancy
     Dosage: 250 MG BY MOUTH ONCE DAILY WITH ?BREAKFAST
     Route: 048
     Dates: start: 20231031
  2. DIACOMIT [Suspect]
     Active Substance: STIRIPENTOL
     Indication: Severe myoclonic epilepsy of infancy
     Dosage: 250 MG BY MOUTH ONCE DAILY AT ?BEDTIME
     Route: 048
     Dates: start: 20231031
  3. DIACOMIT [Suspect]
     Active Substance: STIRIPENTOL
     Indication: Severe myoclonic epilepsy of infancy
     Dosage: 1500 MG BY MOUTH TWICE DAILY
     Route: 048
     Dates: start: 20231031

REACTIONS (4)
  - Inappropriate schedule of product administration [Unknown]
  - Off label use [Unknown]
  - Drug ineffective [Unknown]
  - Hospitalisation [Unknown]

NARRATIVE: CASE EVENT DATE: 20231031
